FAERS Safety Report 9851741 (Version 1)
Quarter: 2014Q1

REPORT INFORMATION
  Report Type: Spontaneous
  Country: FR (occurrence: FR)
  Receive Date: 20140129
  Receipt Date: 20140129
  Transmission Date: 20141002
  Serious: Yes (Hospitalization)
  Sender: FDA-Public Use
  Company Number: FR-ROCHE-1338210

PATIENT
  Age: 50 Year
  Sex: Male

DRUGS (15)
  1. PEGASYS [Suspect]
     Indication: HEPATITIS C
     Route: 065
     Dates: start: 20130902, end: 20131224
  2. COPEGUS [Suspect]
     Indication: HEPATITIS C
     Route: 065
     Dates: start: 20130902, end: 20131224
  3. INCIVO [Suspect]
     Indication: HEPATITIS C
     Route: 065
     Dates: start: 20130902, end: 20131224
  4. NORVIR [Concomitant]
  5. VIREAD [Concomitant]
  6. ISENTRESS [Concomitant]
  7. PREZISTA [Concomitant]
  8. TITANOREINE (FRANCE) [Concomitant]
  9. LIDOCAINE [Concomitant]
  10. LOPERAMIDE [Concomitant]
  11. CIALIS [Concomitant]
  12. DAFALGAN [Concomitant]
  13. DAFLON (FRANCE) [Concomitant]
  14. AZADOSE [Concomitant]
  15. OMEPRAZOLE [Concomitant]

REACTIONS (3)
  - Muscular weakness [Recovered/Resolved]
  - Amyotrophy [Recovered/Resolved]
  - Gingivitis [Recovered/Resolved]
